FAERS Safety Report 10403790 (Version 1)
Quarter: 2014Q3

REPORT INFORMATION
  Report Type: Spontaneous
  Country: US (occurrence: US)
  Receive Date: 20140822
  Receipt Date: 20140822
  Transmission Date: 20150326
  Serious: No
  Sender: FDA-Public Use
  Company Number: US-NOVEN-14US009670

PATIENT
  Sex: Female

DRUGS (1)
  1. MINIVELLE [Suspect]
     Active Substance: ESTRADIOL
     Indication: PRODUCT USED FOR UNKNOWN INDICATION
     Dosage: 0.05 MG, 2X/WK
     Route: 062

REACTIONS (3)
  - Accidental exposure to product [Unknown]
  - No adverse event [None]
  - Product quality issue [Unknown]

NARRATIVE: CASE EVENT DATE: 20140501
